FAERS Safety Report 11046794 (Version 1)
Quarter: 2015Q2

REPORT INFORMATION
  Report Type: Spontaneous
  Country: US (occurrence: None)
  Receive Date: 20150416
  Receipt Date: 20150416
  Transmission Date: 20150821
  Serious: Yes (Other)
  Sender: FDA-Public Use
  Company Number: DEP_02621_2015

PATIENT
  Age: 41 Year
  Sex: Female
  Weight: 70.31 kg

DRUGS (2)
  1. GRALISE [Suspect]
     Active Substance: GABAPENTIN
     Indication: OFF LABEL USE
     Dosage: (STARTER PACK, TITRATED UP TO 1800 MG, ONCE DAILY ORAL)
     Route: 048
     Dates: start: 20150301, end: 201503
  2. GRALISE [Suspect]
     Active Substance: GABAPENTIN
     Indication: SPINAL PAIN
     Dosage: (STARTER PACK, TITRATED UP TO 1800 MG, ONCE DAILY ORAL)
     Route: 048
     Dates: start: 20150301, end: 201503

REACTIONS (3)
  - Menorrhagia [None]
  - Asthenia [None]
  - Menstrual disorder [None]

NARRATIVE: CASE EVENT DATE: 201503
